FAERS Safety Report 5497074-6 (Version None)
Quarter: 2007Q4

REPORT INFORMATION
  Report Type: 
  Country: None (occurrence: None)
  Receive Date: 20071025
  Receipt Date: 20071015
  Transmission Date: 20080405
  Serious: Yes (Other)
  Sender: FDA-Public Use
  Company Number: JP-ROCHE-525557

PATIENT
  Age: 39 Year
  Sex: Male

DRUGS (1)
  1. HORIZON [Suspect]
     Dosage: OVERDOSE
     Route: 048

REACTIONS (3)
  - COMPARTMENT SYNDROME [None]
  - OVERDOSE [None]
  - RENAL FAILURE ACUTE [None]
